FAERS Safety Report 19828209 (Version 2)
Quarter: 2021Q3

REPORT INFORMATION
  Report Type: Report from Study
  Country: US (occurrence: US)
  Receive Date: 20210914
  Receipt Date: 20210914
  Transmission Date: 20211014
  Serious: Yes (Other)
  Sender: FDA-Public Use
  Company Number: NVSC2021US199490

PATIENT
  Sex: Female

DRUGS (1)
  1. PIQRAY [Suspect]
     Active Substance: ALPELISIB
     Indication: BREAST CANCER
     Dosage: UNK
     Route: 065

REACTIONS (6)
  - Hypersomnia [Unknown]
  - Diarrhoea [Unknown]
  - Fatigue [Unknown]
  - Upper respiratory tract congestion [Unknown]
  - Blood glucose increased [Unknown]
  - Vomiting [Unknown]
